FAERS Safety Report 5467361-6 (Version None)
Quarter: 2007Q3

REPORT INFORMATION
  Report Type: 
  Country: None (occurrence: None)
  Receive Date: 20070925
  Receipt Date: 20070920
  Transmission Date: 20080115
  Serious: Yes (Death, Hospitalization)
  Sender: FDA-Public Use
  Company Number: US-ASTRAZENECA-2006UW21504

PATIENT
  Age: 66 Year
  Sex: Female
  Weight: 80 kg

DRUGS (2)
  1. SEROQUEL [Suspect]
     Indication: SCHIZOPHRENIA
     Route: 048
     Dates: end: 20050921
  2. SEROQUEL [Suspect]
     Indication: DEPRESSION
     Route: 048
     Dates: end: 20050921

REACTIONS (4)
  - ASPIRATION [None]
  - CARDIOMYOPATHY [None]
  - RENAL FAILURE [None]
  - TYPE 2 DIABETES MELLITUS [None]
